FAERS Safety Report 8809496 (Version 2)
Quarter: 2013Q1

REPORT INFORMATION
  Report Type: Spontaneous
  Country: FR (occurrence: AT)
  Receive Date: 20120926
  Receipt Date: 20130124
  Transmission Date: 20140127
  Serious: Yes (Other)
  Sender: FDA-Public Use
  Company Number: AT-FRI-1000038889

PATIENT
  Age: 42 Year
  Sex: Male
  Weight: 100 kg

DRUGS (2)
  1. MILNACIPRAN [Suspect]
     Indication: DEPRESSION
     Dosage: 100 MG
     Dates: start: 20120808, end: 20120822
  2. OMEC [Concomitant]

REACTIONS (4)
  - Urinary retention [Recovered/Resolved]
  - Painful ejaculation [Recovered/Resolved]
  - Middle insomnia [Recovered/Resolved]
  - Hyperhidrosis [Recovered/Resolved]
